FAERS Safety Report 8460401-1 (Version None)
Quarter: 2012Q2

REPORT INFORMATION
  Report Type: 
  Country: None (occurrence: None)
  Receive Date: 20120622
  Receipt Date: 20120618
  Transmission Date: 20120825
  Serious: Yes (Life-Threatening, Hospitalization, Other)
  Sender: FDA-Public Use
  Company Number: US-ELI_LILLY_AND_COMPANY-US201206006521

PATIENT
  Sex: Male

DRUGS (2)
  1. HUMALOG [Suspect]
     Indication: TYPE 1 DIABETES MELLITUS
     Dosage: UNK, PRN
     Dates: start: 19991130
  2. LANTUS [Concomitant]

REACTIONS (13)
  - HYPERHIDROSIS [None]
  - DIZZINESS [None]
  - DIABETIC KETOACIDOSIS [None]
  - VOMITING [None]
  - COELIAC DISEASE [None]
  - ATTENTION DEFICIT/HYPERACTIVITY DISORDER [None]
  - MORBID THOUGHTS [None]
  - DIARRHOEA [None]
  - BLOOD GLUCOSE INCREASED [None]
  - PALLOR [None]
  - GLYCOSYLATED HAEMOGLOBIN INCREASED [None]
  - DEPRESSION [None]
  - APPARENT LIFE THREATENING EVENT [None]
